FAERS Safety Report 5754310-6 (Version None)
Quarter: 2008Q2

REPORT INFORMATION
  Report Type: 
  Country: None (occurrence: None)
  Receive Date: 20080527
  Receipt Date: 20080509
  Transmission Date: 20081010
  Serious: Yes (Hospitalization)
  Sender: FDA-Public Use
  Company Number: DSA_31864_2008

PATIENT
  Sex: Female

DRUGS (2)
  1. TEMESTA - LORAZEPAM) [Suspect]
     Dosage: (70 MG 1X ORAL)
     Route: 048
     Dates: start: 20060101, end: 20060101
  2. LITHIUM (LITHIUM) 400 MG [Suspect]
     Dosage: (4000 MG 1X ORAL)
     Route: 048
     Dates: start: 20060101, end: 20060101

REACTIONS (5)
  - COMA [None]
  - CONVULSION [None]
  - DYSKINESIA [None]
  - LOSS OF CONSCIOUSNESS [None]
  - MULTIPLE DRUG OVERDOSE [None]
